FAERS Safety Report 17048855 (Version 2)
Quarter: 2020Q1

REPORT INFORMATION
  Report Type: Report from Study
  Country: US (occurrence: US)
  Receive Date: 20191119
  Receipt Date: 20200306
  Transmission Date: 20200409
  Serious: No
  Sender: FDA-Public Use
  Company Number: US-SA-2019SA313495

PATIENT
  Age: 59 Year
  Sex: Female

DRUGS (2)
  1. DUPILUMAB [Suspect]
     Active Substance: DUPILUMAB
     Indication: OESOPHAGEAL SPASM
     Dosage: 300 MG, QOW
     Route: 058
     Dates: start: 201910
  2. DUPILUMAB [Suspect]
     Active Substance: DUPILUMAB
     Indication: ASTHMA
     Dosage: 600 MG, 1X
     Route: 058

REACTIONS (5)
  - Injection site pain [Unknown]
  - Sensory disturbance [Unknown]
  - Abdominal symptom [Unknown]
  - Product use in unapproved indication [Unknown]
  - Injection site swelling [Recovered/Resolved]

NARRATIVE: CASE EVENT DATE: 201910
